FAERS Safety Report 25277120 (Version 1)
Quarter: 2025Q2

REPORT INFORMATION
  Report Type: Spontaneous
  Country: US (occurrence: US)
  Receive Date: 20250507
  Receipt Date: 20250507
  Transmission Date: 20250716
  Serious: No
  Sender: Kenvue
  Company Number: US-KENVUE-20250500760

PATIENT
  Age: 75 Year
  Sex: Female

DRUGS (2)
  1. MENS ROGAINE EXTRA STRENGTH [Suspect]
     Active Substance: MINOXIDIL
     Indication: Alopecia
     Route: 061
  2. MENS ROGAINE EXTRA STRENGTH [Suspect]
     Active Substance: MINOXIDIL
     Dosage: HALF CUP FULL TWICE A DAY
     Route: 061
     Dates: start: 20250426, end: 202504

REACTIONS (4)
  - Application site pain [Recovering/Resolving]
  - Application site erythema [Recovering/Resolving]
  - Product use issue [Unknown]
  - Intentional product misuse [Unknown]

NARRATIVE: CASE EVENT DATE: 20250426
